FAERS Safety Report 24171053 (Version 2)
Quarter: 2024Q4

REPORT INFORMATION
  Report Type: Report from Study
  Country: US (occurrence: US)
  Receive Date: 20240805
  Receipt Date: 20241008
  Transmission Date: 20250114
  Serious: Yes (Hospitalization)
  Sender: JAZZ
  Company Number: US-JAZZ PHARMACEUTICALS-2023-US-024527

PATIENT
  Sex: Female

DRUGS (13)
  1. SODIUM OXYBATE [Suspect]
     Active Substance: SODIUM OXYBATE
     Indication: Narcolepsy
     Dosage: UNK
  2. SODIUM OXYBATE [Suspect]
     Active Substance: SODIUM OXYBATE
     Indication: Cataplexy
  3. SODIUM OXYBATE [Suspect]
     Active Substance: SODIUM OXYBATE
     Indication: Somnolence
  4. PROLIA [Concomitant]
     Active Substance: DENOSUMAB
     Dosage: SYRINGE
     Dates: start: 20180618
  5. LISINOPRIL [Concomitant]
     Active Substance: LISINOPRIL
     Dosage: UNK
     Dates: start: 20210112
  6. OXYGEN [Concomitant]
     Active Substance: OXYGEN
     Dosage: UNK
     Dates: start: 20220725
  7. BUPROPION HYDROCHLORIDE XL [Concomitant]
     Active Substance: BUPROPION HYDROCHLORIDE
     Dosage: UNK
     Dates: start: 20230529
  8. ASPERCREME WITH LIDOCAINE [LIDOCAINE] [Concomitant]
     Dosage: UNK
  9. VITAMIN D3 [Concomitant]
     Active Substance: CHOLECALCIFEROL
     Dosage: UNK
     Dates: start: 20240108
  10. CENTRUM SILVER ADVANCE [Concomitant]
     Dosage: UNK
     Dates: start: 20240823
  11. VITAMIN D2 [Concomitant]
     Active Substance: ERGOCALCIFEROL
     Dosage: UNK
     Dates: start: 20241001
  12. PROBIOTIC BLEND [Concomitant]
     Dosage: UNK
     Dates: start: 20240901
  13. URSODIOL [Concomitant]
     Active Substance: URSODIOL
     Dosage: UNK
     Dates: start: 20241001

REACTIONS (6)
  - Hospitalisation [Unknown]
  - Ligament sprain [Unknown]
  - Candida infection [Unknown]
  - Constipation [Unknown]
  - Vertigo [Recovered/Resolved]
  - Product administration interrupted [Unknown]
